FAERS Safety Report 22014962 (Version 1)
Quarter: 2023Q1

REPORT INFORMATION
  Report Type: Spontaneous
  Country: US (occurrence: US)
  Receive Date: 20230221
  Receipt Date: 20230221
  Transmission Date: 20230418
  Serious: Yes (Other)
  Sender: FDA-Public Use
  Company Number: US-AUROBINDO-AUR-APL-2023-007958

PATIENT
  Age: 34 Year
  Sex: Male

DRUGS (2)
  1. ESMOLOL [Suspect]
     Active Substance: ESMOLOL HYDROCHLORIDE
     Indication: Heart rate irregular
     Dosage: UNK
     Route: 065
  2. NITROGLYCERIN [Suspect]
     Active Substance: NITROGLYCERIN
     Indication: Heart rate irregular
     Dosage: UNK
     Route: 065

REACTIONS (2)
  - Seizure [Unknown]
  - Hyponatraemia [Recovered/Resolved]
